FAERS Safety Report 18701757 (Version 2)
Quarter: 2021Q1

REPORT INFORMATION
  Report Type: Report from Study
  Country: GB (occurrence: GB)
  Receive Date: 20210105
  Receipt Date: 20210316
  Transmission Date: 20210419
  Serious: Yes (Other)
  Sender: FDA-Public Use
  Company Number: GB-MYLANLABS-2020M1106796

PATIENT
  Age: 55 Year
  Sex: Female

DRUGS (112)
  1. BLOOD [Concomitant]
     Active Substance: WHOLE BLOOD
     Indication: ANAEMIA
     Dosage: 2 UNIT
     Route: 042
     Dates: start: 20160317, end: 20160317
  2. DEXAMETHASONE. [Concomitant]
     Active Substance: DEXAMETHASONE
     Dosage: 4 MILLIGRAM
     Route: 048
     Dates: start: 20151104, end: 20151110
  3. COTRIMOXAZOLE [Concomitant]
     Active Substance: SULFAMETHOXAZOLE\TRIMETHOPRIM
     Dosage: 960 MILLIGRAM, 0.5 PER DAY
     Route: 048
     Dates: start: 20190206, end: 20190211
  4. BENZYLPENICILLIN [Concomitant]
     Active Substance: PENICILLIN G
     Indication: PYREXIA
     Dosage: 1.2 GRAM
     Route: 042
     Dates: start: 20180912, end: 20180915
  5. MORPHINE SULPHATE [Concomitant]
     Active Substance: MORPHINE SULFATE
     Indication: BACK PAIN
     Dosage: 30 MILLIGRAM, QD
     Route: 048
     Dates: start: 201504
  6. DOXYCYCLINE. [Concomitant]
     Active Substance: DOXYCYCLINE
     Dosage: 100 MILLIGRAM
     Route: 048
     Dates: start: 20180814, end: 20180814
  7. INHIXA [Concomitant]
     Active Substance: ENOXAPARIN SODIUM
     Indication: PRODUCT USED FOR UNKNOWN INDICATION
     Dosage: 1 OT, QD
     Route: 058
     Dates: start: 20190610, end: 20190623
  8. INHIXA [Concomitant]
     Active Substance: ENOXAPARIN SODIUM
     Dosage: 1 UNK, QD
     Route: 058
     Dates: start: 20190610, end: 20190623
  9. HYALURONIDASE, HUMAN RECOMBINANT [Suspect]
     Active Substance: HYALURONIDASE (HUMAN RECOMBINANT)
     Indication: HER2 POSITIVE BREAST CANCER
     Dosage: 600 MILLIGRAM, MONTHLY
     Route: 058
     Dates: start: 20150716, end: 20171222
  10. CIPROFLOXACIN. [Concomitant]
     Active Substance: CIPROFLOXACIN
     Dosage: 1500 MILLIGRAM, QD
     Route: 048
     Dates: start: 20190205, end: 20190206
  11. DEXAMETHASONE. [Concomitant]
     Active Substance: DEXAMETHASONE
     Dosage: 1 MILLIGRAM
     Route: 048
     Dates: start: 20151118, end: 20151124
  12. BENZYLPENICILLIN [Concomitant]
     Active Substance: PENICILLIN G
     Indication: CELLULITIS
     Dosage: 4.8 GRAM, QD
     Route: 042
     Dates: start: 20180912, end: 20180915
  13. TEICOPLANIN [Concomitant]
     Active Substance: TEICOPLANIN
     Dosage: 1200 MILLIGRAM, QD
     Route: 042
     Dates: start: 20181019, end: 20181025
  14. FLUCLOXACILLIN [Concomitant]
     Active Substance: FLUCLOXACILLIN
     Dosage: 2000 MILLIGRAM, QD
     Route: 048
     Dates: start: 20161110, end: 20161117
  15. CYCLIZINE [Concomitant]
     Active Substance: CYCLIZINE
     Dosage: 150 MILLIGRAM, QD
     Route: 048
     Dates: start: 201507
  16. ZANAMIVIR [Concomitant]
     Active Substance: ZANAMIVIR
     Indication: PRODUCT USED FOR UNKNOWN INDICATION
     Dosage: 2 OT, QD
     Dates: start: 20191218, end: 20191219
  17. CLARITHROMYCIN. [Concomitant]
     Active Substance: CLARITHROMYCIN
     Indication: LOWER RESPIRATORY TRACT INFECTION
     Dosage: 500 MILLIGRAM
     Route: 048
     Dates: start: 20180701, end: 20180711
  18. MORPHINE SULPHATE [Concomitant]
     Active Substance: MORPHINE SULFATE
     Dosage: 60 MILLIGRAM
     Route: 048
     Dates: start: 201504, end: 20160516
  19. BLOOD [Concomitant]
     Active Substance: WHOLE BLOOD
     Dosage: 2 UNITS
     Route: 042
     Dates: start: 20181022, end: 20181022
  20. BLOOD [Concomitant]
     Active Substance: WHOLE BLOOD
     Dosage: 2 UNITS
     Route: 042
     Dates: start: 20190611, end: 20190611
  21. DEXAMETHASONE. [Concomitant]
     Active Substance: DEXAMETHASONE
     Dosage: 8 MILLIGRAM, QD
     Route: 048
     Dates: start: 20151020, end: 20151103
  22. DEXAMETHASONE. [Concomitant]
     Active Substance: DEXAMETHASONE
     Dosage: 1 MILLIGRAM
     Route: 048
     Dates: start: 20151118, end: 20151124
  23. DEXAMETHASONE. [Concomitant]
     Active Substance: DEXAMETHASONE
     Dosage: 8 MILLIGRAM, QD
     Route: 048
     Dates: start: 20151104, end: 20151110
  24. NAPROXEN. [Concomitant]
     Active Substance: NAPROXEN
     Indication: PRODUCT USED FOR UNKNOWN INDICATION
     Dosage: 250 MILLIGRAM
     Route: 048
  25. AMOXICILLIN. [Concomitant]
     Active Substance: AMOXICILLIN
     Dosage: 1500 MILLIGRAM
     Route: 048
     Dates: start: 20180701, end: 20180711
  26. COTRIMOXAZOLE [Concomitant]
     Active Substance: SULFAMETHOXAZOLE\TRIMETHOPRIM
     Indication: SEPSIS
     Dosage: 1 TABLET
     Route: 048
     Dates: start: 20181015, end: 20181022
  27. METRONIDAZOLE. [Concomitant]
     Active Substance: METRONIDAZOLE
     Indication: CELLULITIS
     Dosage: 400 MILLIGRAM
     Route: 048
     Dates: start: 20180915, end: 20180921
  28. DENOSUMAB [Concomitant]
     Active Substance: DENOSUMAB
     Dosage: 120 MILLIGRAM
     Route: 058
     Dates: start: 20180118
  29. MEROPENEM. [Concomitant]
     Active Substance: MEROPENEM
     Dosage: 1 GRAM
     Route: 042
     Dates: start: 20190205, end: 20190205
  30. FLUCLOXACILLIN [Concomitant]
     Active Substance: FLUCLOXACILLIN
     Dosage: 2000 MILLIGRAM, QD
     Route: 048
     Dates: start: 20180910, end: 20180912
  31. CYCLIZINE [Concomitant]
     Active Substance: CYCLIZINE
     Indication: PRODUCT USED FOR UNKNOWN INDICATION
     Dosage: 50 MILLIGRAM
     Route: 048
     Dates: start: 201507
  32. MORPHINE SULPHATE [Concomitant]
     Active Substance: MORPHINE SULFATE
     Dosage: 40 MILLIGRAM
     Route: 048
     Dates: start: 20150516, end: 201611
  33. CO?AMOXICLAV                       /00756801/ [Concomitant]
     Active Substance: AMOXICILLIN\CLAVULANIC ACID
     Indication: PYREXIA
     Dosage: 625 MILLIGRAM
     Route: 048
     Dates: start: 20190205, end: 20190206
  34. CO?AMOXICLAV                       /00756801/ [Concomitant]
     Active Substance: AMOXICILLIN\CLAVULANIC ACID
     Dosage: 1875 MILLIGRAM, QD
     Route: 048
     Dates: start: 20190205, end: 20190206
  35. DOXYCYCLINE. [Concomitant]
     Active Substance: DOXYCYCLINE
     Indication: LOWER RESPIRATORY TRACT INFECTION
     Dosage: 100 MILLIGRAM, QD
     Route: 048
     Dates: start: 20180815
  36. DOXYCYCLINE. [Concomitant]
     Active Substance: DOXYCYCLINE
     Dosage: 200 MILLIGRAM, QD
     Route: 048
     Dates: start: 20191005
  37. LETROZOLE. [Suspect]
     Active Substance: LETROZOLE
     Indication: BREAST CANCER METASTATIC
     Dosage: 2.5 MILLIGRAM, QD (DRUG DISCONTINUED)
     Route: 048
     Dates: start: 201507, end: 20170427
  38. BLOOD [Concomitant]
     Active Substance: WHOLE BLOOD
     Dosage: 2 UNITS
     Route: 042
     Dates: start: 20170906, end: 20170906
  39. DEXAMETHASONE. [Concomitant]
     Active Substance: DEXAMETHASONE
     Dosage: 1 MILLIGRAM
     Route: 048
     Dates: start: 20151125, end: 20151202
  40. DEXAMETHASONE. [Concomitant]
     Active Substance: DEXAMETHASONE
     Dosage: 2 MILLIGRAM, QD
     Route: 048
     Dates: start: 20151118, end: 20151124
  41. NAPROXEN. [Concomitant]
     Active Substance: NAPROXEN
     Dosage: 500 MILLIGRAM, QD
     Route: 048
  42. DIAZEPAM. [Concomitant]
     Active Substance: DIAZEPAM
     Indication: MUSCULOSKELETAL STIFFNESS
     Dosage: 6 MILLIGRAM, QD
     Route: 048
     Dates: start: 20180105
  43. COTRIMOXAZOLE [Concomitant]
     Active Substance: SULFAMETHOXAZOLE\TRIMETHOPRIM
     Dosage: 1920 MILLIGRAM, QD
     Route: 042
     Dates: start: 20190611, end: 20190611
  44. MEROPENEM. [Concomitant]
     Active Substance: MEROPENEM
     Indication: PYREXIA
     Dosage: 1 GRAM
     Route: 042
     Dates: start: 20180813, end: 20180814
  45. LINEZOLID. [Concomitant]
     Active Substance: LINEZOLID
     Dosage: 1200 MILLIGRAM, QD
     Route: 048
     Dates: start: 20181223, end: 20181227
  46. CLARITHROMYCIN. [Concomitant]
     Active Substance: CLARITHROMYCIN
     Indication: PYREXIA
     Dosage: 500 MILLIGRAM
     Route: 048
     Dates: start: 20190415
  47. MORPHINE SULPHATE [Concomitant]
     Active Substance: MORPHINE SULFATE
     Dosage: 10 MILLIGRAM
     Route: 048
     Dates: start: 20171224
  48. DOXYCYCLINE. [Concomitant]
     Active Substance: DOXYCYCLINE
     Indication: PYREXIA
     Dosage: 100 MILLIGRAM, QD
     Route: 048
     Dates: start: 20170112, end: 20170118
  49. CALCIUM [Concomitant]
     Active Substance: CALCIUM
     Indication: PRODUCT USED FOR UNKNOWN INDICATION
     Dosage: 500 MILLIGRAM, QD
     Route: 048
     Dates: start: 20150727, end: 20180117
  50. TRASTUZUMAB. [Suspect]
     Active Substance: TRASTUZUMAB
     Indication: BREAST CANCER METASTATIC
     Dosage: 600 MILLIGRAM, MONTHLY (DRUG DISCONTINUED)
     Route: 058
     Dates: start: 20150716, end: 20171222
  51. AMOXICILLIN. [Concomitant]
     Active Substance: AMOXICILLIN
     Indication: LOWER RESPIRATORY TRACT INFECTION
     Dosage: UNK
     Route: 048
     Dates: start: 20170701, end: 20170706
  52. AMOXICILLIN. [Concomitant]
     Active Substance: AMOXICILLIN
     Dosage: 1500 MILLIGRAM, QD
     Route: 048
     Dates: start: 20190414
  53. COTRIMOXAZOLE [Concomitant]
     Active Substance: SULFAMETHOXAZOLE\TRIMETHOPRIM
     Indication: PYREXIA
     Dosage: 960 MILLIGRAM, 0.5 PER DAY
     Route: 048
     Dates: start: 20190206, end: 20190211
  54. COTRIMOXAZOLE [Concomitant]
     Active Substance: SULFAMETHOXAZOLE\TRIMETHOPRIM
     Dosage: 960 MILLIGRAM, 0.5 PER DAY
     Route: 042
     Dates: start: 20190611, end: 20190611
  55. MEROPENEM. [Concomitant]
     Active Substance: MEROPENEM
     Dosage: 1 GRAM
     Route: 042
     Dates: start: 20190610, end: 20190617
  56. LOPERAMIDE [Concomitant]
     Active Substance: LOPERAMIDE
     Indication: DIARRHOEA
     Dosage: UNK
     Dates: start: 201804, end: 2019
  57. CITALOPRAM [Concomitant]
     Active Substance: CITALOPRAM HYDROBROMIDE
     Indication: PRODUCT USED FOR UNKNOWN INDICATION
     Dosage: 40 MILLIGRAM, QD
     Route: 048
     Dates: start: 2005
  58. FLUCLOXACILLIN [Concomitant]
     Active Substance: FLUCLOXACILLIN
     Dosage: 1 GRAM
     Route: 042
     Dates: start: 20180912, end: 20180915
  59. CLARITHROMYCIN. [Concomitant]
     Active Substance: CLARITHROMYCIN
     Indication: SEPSIS
     Dosage: 500 MILLIGRAM
     Route: 042
     Dates: start: 20190611, end: 20190611
  60. ZOMORPH [Concomitant]
     Active Substance: MORPHINE SULFATE
     Dosage: 60 MILLIGRAM, QD
     Route: 048
     Dates: start: 201611
  61. LISINOPRIL. [Concomitant]
     Active Substance: LISINOPRIL
     Dosage: 7.5 MILLIGRAM, QD
     Route: 048
     Dates: start: 20161110
  62. HYOSCINE BUTYLBROMIDE [Concomitant]
     Active Substance: BUTYLSCOPOLAMINE BROMIDE
     Dosage: 30 MILLIGRAM, QD
     Route: 048
     Dates: start: 20181222
  63. DEXAMETHASONE. [Concomitant]
     Active Substance: DEXAMETHASONE
     Dosage: 2 MILLIGRAM
     Route: 048
     Dates: start: 20151111, end: 20151117
  64. DEXAMETHASONE. [Concomitant]
     Active Substance: DEXAMETHASONE
     Dosage: 4 MILLIGRAM, QD
     Route: 048
     Dates: start: 20151111, end: 20151117
  65. DEXAMETHASONE. [Concomitant]
     Active Substance: DEXAMETHASONE
     Dosage: 2 MILLIGRAM, QD
     Route: 048
     Dates: start: 20151125, end: 20151202
  66. PROMETHAZINE HYDROCHLORIDE. [Concomitant]
     Active Substance: PROMETHAZINE HYDROCHLORIDE
     Indication: PRODUCT USED FOR UNKNOWN INDICATION
     Dosage: 25 MILLIGRAM, QD
     Route: 048
  67. VITAMIN D3 [Concomitant]
     Active Substance: CHOLECALCIFEROL
     Indication: PRODUCT USED FOR UNKNOWN INDICATION
     Dosage: 400 INTERNATIONAL UNIT, QD
     Route: 048
     Dates: start: 20150827
  68. LINEZOLID. [Concomitant]
     Active Substance: LINEZOLID
     Indication: PYREXIA
     Dosage: 600 MILLIGRAM
     Route: 048
     Dates: start: 20181223, end: 20181227
  69. GABAPENTIN. [Concomitant]
     Active Substance: GABAPENTIN
     Indication: PRODUCT USED FOR UNKNOWN INDICATION
     Dosage: 300 MILLIGRAM, Q3D
     Route: 048
     Dates: start: 20151231
  70. FLUCLOXACILLIN [Concomitant]
     Active Substance: FLUCLOXACILLIN
     Indication: PYREXIA
     Dosage: 500 MILLIGRAM
     Route: 048
     Dates: start: 20161110, end: 20161117
  71. FLUCLOXACILLIN [Concomitant]
     Active Substance: FLUCLOXACILLIN
     Indication: PARONYCHIA
     Dosage: 500 MILLIGRAM
     Route: 048
     Dates: start: 20180915, end: 20180921
  72. FLUCLOXACILLIN [Concomitant]
     Active Substance: FLUCLOXACILLIN
     Dosage: 2000 MILLIGRAM, QD
     Route: 048
     Dates: start: 20180915, end: 20180921
  73. FLUCLOXACILLIN [Concomitant]
     Active Substance: FLUCLOXACILLIN
     Dosage: 4 GRAM, QD
     Route: 042
     Dates: start: 20180912, end: 20180915
  74. CLARITHROMYCIN. [Concomitant]
     Active Substance: CLARITHROMYCIN
     Dosage: 1000 MILLIGRAM, QD
     Route: 048
     Dates: start: 20180701, end: 20180711
  75. LANSOPRAZOLE. [Concomitant]
     Active Substance: LANSOPRAZOLE
     Indication: PRODUCT USED FOR UNKNOWN INDICATION
     Dosage: 15 MILLIGRAM, QD
     Route: 048
     Dates: start: 2001
  76. PEPTAC                             /01521901/ [Concomitant]
     Active Substance: CALCIUM CARBONATE\SODIUM ALGINATE\SODIUM BICARBONATE
     Indication: DYSPEPSIA
     Dosage: 15 MILLILITER
     Route: 048
  77. HYOSCINE BUTYLBROMIDE [Concomitant]
     Active Substance: BUTYLSCOPOLAMINE BROMIDE
     Indication: PRODUCT USED FOR UNKNOWN INDICATION
     Dosage: 10 MILLIGRAM
     Route: 048
     Dates: start: 20181222
  78. TINZAPARIN [Concomitant]
     Active Substance: TINZAPARIN
     Indication: PRODUCT USED FOR UNKNOWN INDICATION
     Dosage: 20000 INTERNATIONAL UNIT, QD
     Route: 058
     Dates: start: 20190928
  79. BLOOD [Concomitant]
     Active Substance: WHOLE BLOOD
     Dosage: 2 UNITS
     Route: 042
     Dates: start: 20161022, end: 20161022
  80. CIPROFLOXACIN. [Concomitant]
     Active Substance: CIPROFLOXACIN
     Indication: PYREXIA
     Dosage: 750 MILLIGRAM
     Route: 048
     Dates: start: 20190205, end: 20190206
  81. DEXAMETHASONE. [Concomitant]
     Active Substance: DEXAMETHASONE
     Dosage: 8 MILLIGRAM
     Route: 048
     Dates: start: 20151008, end: 20151020
  82. AMOXICILLIN. [Concomitant]
     Active Substance: AMOXICILLIN
     Dosage: 500 MILLIGRAM
     Route: 048
     Dates: start: 20180701, end: 20180711
  83. COTRIMOXAZOLE [Concomitant]
     Active Substance: SULFAMETHOXAZOLE\TRIMETHOPRIM
     Dosage: 960 MILLIGRAM, 0.5 PER DAY
     Route: 048
     Dates: start: 20190206, end: 20190211
  84. METRONIDAZOLE. [Concomitant]
     Active Substance: METRONIDAZOLE
     Indication: OSTEOMYELITIS
     Dosage: UNK
     Route: 048
     Dates: start: 20170701, end: 20170708
  85. METRONIDAZOLE. [Concomitant]
     Active Substance: METRONIDAZOLE
     Indication: PYREXIA
     Dosage: 1600 MILLIGRAM, QD
     Route: 048
     Dates: start: 20180915, end: 20180921
  86. TEICOPLANIN [Concomitant]
     Active Substance: TEICOPLANIN
     Indication: PYREXIA
     Dosage: 600 MILLIGRAM
     Route: 042
     Dates: start: 20181019, end: 20181025
  87. MEROPENEM. [Concomitant]
     Active Substance: MEROPENEM
     Dosage: 3 GRAM, QD
     Route: 042
     Dates: start: 20181222, end: 20181227
  88. GABAPENTIN. [Concomitant]
     Active Substance: GABAPENTIN
     Dosage: 300 MILLIGRAM, TID
     Route: 048
     Dates: start: 20151231
  89. GABAPENTIN. [Concomitant]
     Active Substance: GABAPENTIN
     Dosage: 300 MILLIGRAM
     Route: 048
     Dates: start: 20151231
  90. FLUCLOXACILLIN [Concomitant]
     Active Substance: FLUCLOXACILLIN
     Indication: CELLULITIS
     Dosage: 500 MILLIGRAM
     Route: 048
     Dates: start: 20180910, end: 20180912
  91. CLARITHROMYCIN. [Concomitant]
     Active Substance: CLARITHROMYCIN
     Dosage: 1000 MILLIGRAM, QD
     Route: 042
     Dates: start: 20190611, end: 20190611
  92. ZOMORPH [Concomitant]
     Active Substance: MORPHINE SULFATE
     Indication: PAIN
     Dosage: 30 MILLIGRAM
     Route: 048
     Dates: start: 201611
  93. PARACETAMOL [Concomitant]
     Active Substance: ACETAMINOPHEN
     Indication: PRODUCT USED FOR UNKNOWN INDICATION
     Dosage: 500 MILLIGRAM, PRN
     Route: 048
     Dates: start: 201504
  94. LISINOPRIL. [Concomitant]
     Active Substance: LISINOPRIL
     Indication: EJECTION FRACTION DECREASED
     Dosage: 2.5 MILLIGRAM
     Route: 048
     Dates: start: 20161110
  95. ACIDEX                             /01521901/ [Concomitant]
     Active Substance: CALCIUM CARBONATE\SODIUM ALGINATE\SODIUM BICARBONATE
     Indication: DYSPEPSIA
     Dosage: 15 MILLILITER, PRN
     Route: 048
  96. EXEMESTANE. [Suspect]
     Active Substance: EXEMESTANE
     Indication: BREAST CANCER METASTATIC
     Dosage: 25 MILLIGRAM, QD (DRUG DISCONTINUED)
     Route: 048
     Dates: start: 20170428, end: 20180110
  97. FUROSEMIDE. [Concomitant]
     Active Substance: FUROSEMIDE
     Indication: PRODUCT USED FOR UNKNOWN INDICATION
     Dosage: 20 MILLIGRAM, QD
     Route: 048
     Dates: start: 20191113, end: 20191116
  98. DEXAMETHASONE. [Concomitant]
     Active Substance: DEXAMETHASONE
     Indication: METASTASES TO BONE
     Dosage: 8 MILLIGRAM
     Route: 048
     Dates: start: 20151008, end: 20151020
  99. DEXAMETHASONE. [Concomitant]
     Active Substance: DEXAMETHASONE
     Dosage: 4 MILLIGRAM
     Route: 048
     Dates: start: 20151020, end: 20151103
  100. DEXAMETHASONE. [Concomitant]
     Active Substance: DEXAMETHASONE
     Dosage: 16 MILLIGRAM, QD
     Route: 048
     Dates: start: 20151008, end: 20151020
  101. AMOXICILLIN. [Concomitant]
     Active Substance: AMOXICILLIN
     Indication: OSTEOMYELITIS
     Dosage: 1000 MILLIGRAM
     Route: 048
     Dates: start: 20180701, end: 20180711
  102. AMOXICILLIN. [Concomitant]
     Active Substance: AMOXICILLIN
     Indication: PYREXIA
     Dosage: 500 MILLIGRAM
     Route: 048
     Dates: start: 20190414
  103. AMOXICILLIN. [Concomitant]
     Active Substance: AMOXICILLIN
     Dosage: 3000 MILLIGRAM, QD
     Route: 048
     Dates: start: 20180701, end: 20180711
  104. DIAZEPAM. [Concomitant]
     Active Substance: DIAZEPAM
     Indication: BACK PAIN
     Dosage: 2 MILLIGRAM
     Route: 048
     Dates: start: 20180105
  105. DENOSUMAB [Concomitant]
     Active Substance: DENOSUMAB
     Indication: METASTASES TO BONE
     Dosage: 120 MG, Q4W
     Route: 058
     Dates: start: 20170604, end: 20170613
  106. MEROPENEM. [Concomitant]
     Active Substance: MEROPENEM
     Indication: SEPSIS
     Dosage: 1 GRAM
     Route: 042
     Dates: start: 20181222, end: 20181227
  107. MEROPENEM. [Concomitant]
     Active Substance: MEROPENEM
     Dosage: 3 GRAM, QD
     Route: 042
     Dates: start: 20190610, end: 20190617
  108. MEROPENEM. [Concomitant]
     Active Substance: MEROPENEM
     Dosage: 3 GRAM, QD
     Route: 042
     Dates: start: 20180813, end: 20180814
  109. CLARITHROMYCIN. [Concomitant]
     Active Substance: CLARITHROMYCIN
     Dosage: 1000 MILLIGRAM, QD
     Route: 048
     Dates: start: 20190415
  110. MORPHINE SULPHATE [Concomitant]
     Active Substance: MORPHINE SULFATE
     Dosage: 40 MILLIGRAM, QD
     Route: 048
     Dates: start: 20171224
  111. LANSOPRAZOLE. [Concomitant]
     Active Substance: LANSOPRAZOLE
     Dosage: 30 MILLIGRAM, QD
     Route: 048
  112. DOXYCYCLINE. [Concomitant]
     Active Substance: DOXYCYCLINE
     Dosage: 200 MILLIGRAM
     Route: 048
     Dates: start: 20180814, end: 20180814

REACTIONS (5)
  - Paraesthesia [Recovered/Resolved]
  - Osteomyelitis [Recovered/Resolved]
  - Staphylococcal infection [Not Recovered/Not Resolved]
  - Staphylococcus test positive [Recovered/Resolved]
  - Wound infection staphylococcal [Not Recovered/Not Resolved]

NARRATIVE: CASE EVENT DATE: 20170201
